FAERS Safety Report 8046721-3 (Version None)
Quarter: 2012Q1

REPORT INFORMATION
  Report Type: 
  Country: None (occurrence: None)
  Receive Date: 20120116
  Receipt Date: 20120110
  Transmission Date: 20120608
  Serious: Yes (Hospitalization)
  Sender: FDA-Public Use
  Company Number: US-BIOGENIDEC-2011BI047998

PATIENT
  Age: 43 Year
  Sex: Female

DRUGS (2)
  1. TYSABRI [Suspect]
     Route: 042
     Dates: start: 20111221
  2. TYSABRI [Suspect]
     Indication: MULTIPLE SCLEROSIS
     Route: 042
     Dates: start: 20080423, end: 20110317

REACTIONS (11)
  - THROMBOSIS [None]
  - MENTAL STATUS CHANGES [None]
  - HYPOVENTILATION [None]
  - PAIN IN EXTREMITY [None]
  - PULMONARY OEDEMA [None]
  - LETHARGY [None]
  - HEPATIC HAEMATOMA [None]
  - PLEURAL EFFUSION [None]
  - NAUSEA [None]
  - ASTHENIA [None]
  - DEHYDRATION [None]
